FAERS Safety Report 6745611-3 (Version None)
Quarter: 2010Q2

REPORT INFORMATION
  Report Type: 
  Country: None (occurrence: None)
  Receive Date: 20100528
  Receipt Date: 20100514
  Transmission Date: 20101027
  Serious: Yes (Hospitalization)
  Sender: FDA-Public Use
  Company Number: US-RANBAXY-2010US-33882

PATIENT

DRUGS (7)
  1. VALPROIC ACID [Suspect]
     Indication: DRUG USE FOR UNKNOWN INDICATION
     Dosage: 250 MG, QD
     Route: 048
     Dates: start: 19990101
  2. ISOPTIN [Suspect]
     Indication: CARDIAC DISORDER
     Dosage: UNK UNK,
     Route: 048
  3. ZOLPIDEM [Suspect]
     Indication: DRUG USE FOR UNKNOWN INDICATION
     Dosage: UNK
     Route: 048
  4. NEPROMIZINE [Suspect]
     Indication: DRUG USE FOR UNKNOWN INDICATION
     Dosage: ONE IN ONE DAY
     Route: 048
  5. FLUPHENAZINE DECANOATE [Suspect]
     Indication: DRUG USE FOR UNKNOWN INDICATION
     Dosage: UNK
     Dates: start: 19940101
  6. ETHYL LOFLAZEPATE [Suspect]
     Indication: CARDIAC DISORDER
     Dosage: 2 MG, BID
     Route: 048
  7. ALLOPURINOL [Suspect]
     Indication: DRUG USE FOR UNKNOWN INDICATION
     Route: 048

REACTIONS (5)
  - DYSPNOEA [None]
  - HYPONATRAEMIA [None]
  - INAPPROPRIATE ANTIDIURETIC HORMONE SECRETION [None]
  - LUNG DISORDER [None]
  - OEDEMA [None]
